FAERS Safety Report 10237622 (Version 1)
Quarter: 2014Q2

REPORT INFORMATION
  Report Type: Spontaneous
  Country: GB (occurrence: GB)
  Receive Date: 20140616
  Receipt Date: 20140616
  Transmission Date: 20141212
  Serious: Yes (Hospitalization, Other)
  Sender: FDA-Public Use
  Company Number: GB-AMGEN INC.-GBRSP2014044233

PATIENT
  Age: 70 Year
  Sex: Male

DRUGS (1)
  1. ENBREL [Suspect]
     Indication: PRODUCT USED FOR UNKNOWN INDICATION
     Dosage: UNK
     Route: 065
     Dates: end: 201404

REACTIONS (5)
  - Thyroid disorder [Unknown]
  - Prostatic disorder [Unknown]
  - Lower respiratory tract infection [Unknown]
  - Pneumonia [Unknown]
  - Sepsis [Unknown]
